FAERS Safety Report 7389421-5 (Version None)
Quarter: 2011Q2

REPORT INFORMATION
  Report Type: 
  Country: None (occurrence: None)
  Receive Date: 20110401
  Receipt Date: 20110324
  Transmission Date: 20111010
  Serious: Yes (Other)
  Sender: FDA-Public Use
  Company Number: GB-JNJFOC-20110310148

PATIENT
  Age: 77 Year
  Sex: Female
  Weight: 81 kg

DRUGS (10)
  1. SIMVASTATIN [Concomitant]
  2. ATENOLOL [Concomitant]
  3. PREDNISOLONE [Concomitant]
  4. PARACETAMOL [Suspect]
     Indication: PRODUCT USED FOR UNKNOWN INDICATION
     Route: 065
  5. ASPIRIN [Concomitant]
  6. BENDROFLUMETHIAZIDE [Concomitant]
  7. DOXAZOSIN [Concomitant]
  8. METFORMIN HCL [Concomitant]
  9. PREDNISOLONE [Concomitant]
  10. PARACETAMOL [Suspect]
     Route: 065

REACTIONS (2)
  - SWOLLEN TONGUE [None]
  - PHARYNGEAL OEDEMA [None]
